FAERS Safety Report 7334916-3 (Version None)
Quarter: 2011Q1

REPORT INFORMATION
  Report Type: 
  Country: None (occurrence: None)
  Receive Date: 20110307
  Receipt Date: 20110228
  Transmission Date: 20110831
  Serious: Yes (Death, Hospitalization)
  Sender: FDA-Public Use
  Company Number: JP-ROCHE-741597

PATIENT
  Age: 51 Year
  Sex: Female

DRUGS (21)
  1. FIRSTCIN [Concomitant]
     Route: 042
     Dates: start: 20090701, end: 20090708
  2. FOLIAMIN [Concomitant]
     Route: 048
     Dates: start: 20090711, end: 20090928
  3. GRAN [Concomitant]
     Route: 042
     Dates: start: 20090828, end: 20090928
  4. PROGRAF [Concomitant]
     Route: 048
     Dates: end: 20091007
  5. VALGANCICLOVIR [Suspect]
     Indication: CYTOMEGALOVIRUS INFECTION
     Dosage: FREQUENCY: 450 MG/DAY, EVERY OTHER DAY.
     Route: 048
     Dates: start: 20090701, end: 20090725
  6. CIPROFLOXACIN [Concomitant]
     Dates: start: 20090723, end: 20090731
  7. MAXIPIME [Concomitant]
     Route: 042
     Dates: start: 20090926, end: 20090928
  8. PREDONINE [Concomitant]
     Route: 048
     Dates: end: 20090709
  9. CIPROFLOXACIN [Concomitant]
     Dates: start: 20090824, end: 20090902
  10. NEUTROGIN [Concomitant]
     Route: 058
     Dates: end: 20090827
  11. VALGANCICLOVIR [Suspect]
     Route: 048
     Dates: start: 20090727, end: 20091005
  12. VANCOMYCIN [Concomitant]
     Route: 041
     Dates: start: 20090701, end: 20090706
  13. PREDONINE [Concomitant]
     Route: 048
     Dates: start: 20090724, end: 20091007
  14. URSO 250 [Concomitant]
     Route: 048
  15. NOVORAPID [Concomitant]
     Route: 058
  16. AMBISOME [Concomitant]
     Route: 041
     Dates: start: 20090725, end: 20090731
  17. PREDONINE [Concomitant]
     Route: 048
     Dates: start: 20090710, end: 20090723
  18. VENOGLOBULIN [Concomitant]
     Dosage: PRN
     Route: 042
  19. EXJADE [Concomitant]
     Route: 048
  20. ITRIZOLE [Concomitant]
     Dates: end: 20090724
  21. BIAPENEM [Concomitant]
     Dosage: DRUG REPOTED AS: OMEGACIN
     Dates: start: 20090926, end: 20090928

REACTIONS (2)
  - PANCYTOPENIA [None]
  - PNEUMONIA [None]
